FAERS Safety Report 13472546 (Version 1)
Quarter: 2017Q2

REPORT INFORMATION
  Report Type: Spontaneous
  Country: US (occurrence: US)
  Receive Date: 20170424
  Receipt Date: 20170424
  Transmission Date: 20170830
  Serious: Yes (Hospitalization)
  Sender: FDA-Public Use
  Company Number: None

PATIENT
  Age: 36 Year
  Sex: Female
  Weight: 72.64 kg

DRUGS (2)
  1. GADAVIST [Suspect]
     Active Substance: GADOBUTROL
     Indication: ARNOLD-CHIARI MALFORMATION
     Dosage: 8ML 1
     Dates: start: 20170410
  2. GADAVIST [Suspect]
     Active Substance: GADOBUTROL
     Indication: HEADACHE
     Dosage: 8ML 1
     Dates: start: 20170410

REACTIONS (4)
  - Urticaria [None]
  - Presyncope [None]
  - Dyspnoea [None]
  - Sneezing [None]

NARRATIVE: CASE EVENT DATE: 20170410
